FAERS Safety Report 4712732-6 (Version None)
Quarter: 2005Q3

REPORT INFORMATION
  Report Type: 
  Country: None (occurrence: None)
  Receive Date: 20050701
  Receipt Date: 20050404
  Transmission Date: 20060218
  Serious: Yes (Hospitalization, Other)
  Sender: FDA-Public Use
  Company Number: 2005054454

PATIENT
  Sex: Female
  Weight: 84.8226 kg

DRUGS (7)
  1. ZOLOFT [Suspect]
     Indication: SLEEP DISORDER
     Dosage: 25 MG (25 MG, 1 IN 1 D), ORAL
     Route: 048
     Dates: start: 20041101, end: 20040101
  2. BEXTRA [Suspect]
     Indication: ARTHRITIS
     Dosage: ORAL
     Route: 048
     Dates: start: 20030401
  3. CELEBREX (CELEXOCIB) [Suspect]
     Indication: ARTHRITIS
     Dosage: 200 MG (200 MG, 1 IN 1 D), ORAL
     Route: 048
  4. ACETAMINOPHEN [Suspect]
     Indication: ILL-DEFINED DISORDER
     Dosage: ORAL
     Route: 048
     Dates: start: 20040101
  5. ALL OTHER THERAPEUTIC PRODUCTS (ALL OTHER THERAPEUTIC PRODUCTS) [Suspect]
     Indication: SLEEP DISORDER
     Dosage: ORAL
     Route: 048
  6. ACETYLLSALICYLIC ACID (ACETYLSALICYLIC ACID) [Concomitant]
  7. CLONIDINE [Concomitant]

REACTIONS (12)
  - ADVERSE EVENT [None]
  - BALANCE DISORDER [None]
  - CHEST PAIN [None]
  - CONDITION AGGRAVATED [None]
  - DIARRHOEA [None]
  - DRUG INTOLERANCE [None]
  - GOUT [None]
  - INSOMNIA [None]
  - MEMORY IMPAIRMENT [None]
  - SLEEP DISORDER [None]
  - UNEVALUABLE EVENT [None]
  - WEIGHT INCREASED [None]
